FAERS Safety Report 16742142 (Version 1)
Quarter: 2019Q3

REPORT INFORMATION
  Report Type: Spontaneous
  Country: US (occurrence: US)
  Receive Date: 20190826
  Receipt Date: 20190826
  Transmission Date: 20191005
  Serious: Yes (Hospitalization)
  Sender: FDA-Public Use
  Company Number: US-COLLEGIUM PHARMACEUTICAL, INC.-2019CGM00231

PATIENT

DRUGS (1)
  1. XTAMPZA ER [Suspect]
     Active Substance: OXYCODONE

REACTIONS (3)
  - Flushing [Unknown]
  - Product substitution issue [Unknown]
  - Erythema [Unknown]
